FAERS Safety Report 17283452 (Version 1)
Quarter: 2020Q1

REPORT INFORMATION
  Report Type: Spontaneous
  Country: US (occurrence: US)
  Receive Date: 20191230
  Receipt Date: 20191230
  Transmission Date: 20200409
  Serious: Yes (Hospitalization)
  Sender: FDA-Public Use
  Company Number: None

PATIENT
  Age: 73 Year
  Sex: Male
  Weight: 115.21 kg

DRUGS (1)
  1. HYDROCHLOROTHIAZIDE/LISINOPRIL (HYDROCHLOROTHAIZIDE 12.5MG/LISINOPRIL [Suspect]
     Active Substance: HYDROCHLOROTHIAZIDE\LISINOPRIL
     Indication: HYPERTENSION
     Route: 048
     Dates: start: 20070118, end: 20140619

REACTIONS (1)
  - Gout [None]

NARRATIVE: CASE EVENT DATE: 20140619
